FAERS Safety Report 8941205 (Version 2)
Quarter: 2013Q1

REPORT INFORMATION
  Report Type: Report from Study
  Country: CA (occurrence: CA)
  Receive Date: 20121203
  Receipt Date: 20130104
  Transmission Date: 20140127
  Serious: Yes (Hospitalization)
  Sender: FDA-Public Use
  Company Number: CA-ROCHE-1161256

PATIENT
  Sex: Female

DRUGS (5)
  1. VEMURAFENIB [Suspect]
     Indication: METASTATIC MALIGNANT MELANOMA
     Route: 048
     Dates: start: 2012, end: 201211
  2. DEXAMETHASONE [Concomitant]
  3. RANITIDINE [Concomitant]
  4. VALPROIC ACID [Concomitant]
  5. SOFLAX (CANADA) [Concomitant]

REACTIONS (2)
  - Eye infection [Unknown]
  - Asthenia [Not Recovered/Not Resolved]
